FAERS Safety Report 25302370 (Version 1)
Quarter: 2025Q2

REPORT INFORMATION
  Report Type: Spontaneous
  Country: US (occurrence: US)
  Receive Date: 20250512
  Receipt Date: 20250512
  Transmission Date: 20250716
  Serious: Yes (Other)
  Sender: TEVA
  Company Number: US-TEVA-VS-3329279

PATIENT

DRUGS (1)
  1. AMPHETAMINE\DEXTROAMPHETAMINE [Suspect]
     Active Substance: AMPHETAMINE\DEXTROAMPHETAMINE
     Indication: Attention deficit hyperactivity disorder
     Route: 065
     Dates: start: 2010, end: 2024

REACTIONS (6)
  - Depressed level of consciousness [Unknown]
  - Feeling abnormal [Unknown]
  - Drug ineffective [Unknown]
  - Depression [Unknown]
  - Depressed mood [Unknown]
  - Apathy [Unknown]
